FAERS Safety Report 7364232-5 (Version None)
Quarter: 2011Q1

REPORT INFORMATION
  Report Type: 
  Country: None (occurrence: None)
  Receive Date: 20110321
  Receipt Date: 20101119
  Transmission Date: 20110831
  Serious: Yes (Hospitalization)
  Sender: FDA-Public Use
  Company Number: A0897042A

PATIENT
  Age: 41 Year
  Sex: Female

DRUGS (1)
  1. AVANDIA [Suspect]
     Dosage: 4MG PER DAY
     Route: 048
     Dates: start: 20000508, end: 20011102

REACTIONS (5)
  - ACUTE MYOCARDIAL INFARCTION [None]
  - PAIN IN EXTREMITY [None]
  - ACUTE CORONARY SYNDROME [None]
  - STENT PLACEMENT [None]
  - ARTERIOSCLEROSIS [None]
